FAERS Safety Report 18484472 (Version 1)
Quarter: 2020Q4

REPORT INFORMATION
  Report Type: Spontaneous
  Country: CN (occurrence: CN)
  Receive Date: 20201110
  Receipt Date: 20201110
  Transmission Date: 20210114
  Serious: Yes (Other)
  Sender: FDA-Public Use
  Company Number: CN-ROCHE-2708564

PATIENT
  Age: 70 Year
  Sex: Male

DRUGS (4)
  1. TEGAFUR GIMERACIL AND OTERACIL POTASSIUM [Concomitant]
     Active Substance: GIMERACIL\OTERACIL\TEGAFUR
     Indication: ADENOCARCINOMA GASTRIC
     Dates: start: 20190113
  2. HERCEPTIN [Suspect]
     Active Substance: TRASTUZUMAB
     Indication: ADENOCARCINOMA GASTRIC
     Route: 065
     Dates: start: 20190113
  3. HERCEPTIN [Suspect]
     Active Substance: TRASTUZUMAB
     Route: 065
  4. PACLITAXEL LIPOSOME [Concomitant]
     Active Substance: PACLITAXEL
     Indication: ADENOCARCINOMA GASTRIC
     Dates: start: 20190113

REACTIONS (9)
  - Cholelithiasis [Unknown]
  - Gallbladder enlargement [Unknown]
  - Gallbladder oedema [Unknown]
  - Obstruction gastric [Unknown]
  - Intra-abdominal fluid collection [Unknown]
  - Infection [Unknown]
  - Neurotoxicity [Unknown]
  - Granulocytopenia [Unknown]
  - Platelet count decreased [Unknown]
